FAERS Safety Report 8179625-6 (Version None)
Quarter: 2012Q1

REPORT INFORMATION
  Report Type: 
  Country: None (occurrence: None)
  Receive Date: 20120302
  Receipt Date: 20120227
  Transmission Date: 20120608
  Serious: Yes (Other)
  Sender: FDA-Public Use
  Company Number: US-AMGEN-USASP2011006149

PATIENT
  Age: 49 Year
  Sex: Male

DRUGS (6)
  1. ENBREL [Suspect]
     Indication: PSORIASIS
     Dosage: 50 MG, QWK
     Route: 058
     Dates: start: 20090301, end: 20110101
  2. CLOBETASOL PROPIONATE [Concomitant]
     Indication: PSORIASIS
     Dosage: UNK UNK, BID
  3. ENBREL [Suspect]
  4. CLOBEX                             /00012002/ [Concomitant]
     Indication: PSORIASIS
     Dosage: UNK UNK, BID
  5. PREVACID [Concomitant]
  6. LIPITOR [Concomitant]

REACTIONS (5)
  - CHEST X-RAY ABNORMAL [None]
  - ARTHRALGIA [None]
  - THYROID CANCER [None]
  - PSORIATIC ARTHROPATHY [None]
  - OEDEMA PERIPHERAL [None]
